FAERS Safety Report 5435431-4 (Version None)
Quarter: 2007Q3

REPORT INFORMATION
  Report Type: 
  Country: None (occurrence: None)
  Receive Date: 20070831
  Receipt Date: 20070822
  Transmission Date: 20080115
  Serious: No
  Sender: FDA-Public Use
  Company Number: A0670943A

PATIENT

DRUGS (1)
  1. ALLI [Suspect]

REACTIONS (7)
  - BOWEL MOVEMENT IRREGULARITY [None]
  - CONSTIPATION [None]
  - DRUG INEFFECTIVE [None]
  - FLATULENCE [None]
  - GASTROINTESTINAL DISORDER [None]
  - IRRITABLE BOWEL SYNDROME [None]
  - RECTAL DISCHARGE [None]
